FAERS Safety Report 21221785 (Version 7)
Quarter: 2023Q2

REPORT INFORMATION
  Report Type: Report from Study
  Country: ES (occurrence: ES)
  Receive Date: 20220817
  Receipt Date: 20230404
  Transmission Date: 20230722
  Serious: Yes (Hospitalization, Other)
  Sender: FDA-Public Use
  Company Number: ES-GILEAD-2022-0592996

PATIENT
  Age: 60 Year
  Sex: Male
  Weight: 96 kg

DRUGS (85)
  1. BREXUCABTAGENE AUTOLEUCEL [Suspect]
     Active Substance: BREXUCABTAGENE AUTOLEUCEL
     Indication: Mantle cell lymphoma
     Dosage: 68
     Route: 042
     Dates: start: 20220801, end: 20220801
  2. CYCLOPHOSPHAMIDE [Suspect]
     Active Substance: CYCLOPHOSPHAMIDE
     Indication: Bone marrow conditioning regimen
     Dosage: 1038
     Route: 042
     Dates: start: 20220727, end: 20220727
  3. CYCLOPHOSPHAMIDE [Suspect]
     Active Substance: CYCLOPHOSPHAMIDE
     Dosage: 1038
     Route: 042
     Dates: start: 20220728, end: 20220728
  4. CYCLOPHOSPHAMIDE [Suspect]
     Active Substance: CYCLOPHOSPHAMIDE
     Dosage: 1038
     Route: 042
     Dates: start: 20220729, end: 20220729
  5. FLUDARABINE [Suspect]
     Active Substance: FLUDARABINE PHOSPHATE
     Indication: Bone marrow conditioning regimen
     Dosage: 62.28
     Route: 042
     Dates: start: 20220727, end: 20220727
  6. FLUDARABINE [Suspect]
     Active Substance: FLUDARABINE PHOSPHATE
     Dosage: 62.28
     Route: 042
     Dates: start: 20220728, end: 20220728
  7. FLUDARABINE [Suspect]
     Active Substance: FLUDARABINE PHOSPHATE
     Dosage: 62.28
     Route: 042
     Dates: start: 20220729, end: 20220729
  8. FERROUS SULFATE [Concomitant]
     Active Substance: FERROUS SULFATE
     Dosage: 80,MG,DAILY
     Route: 048
  9. FERROUS SULFATE [Concomitant]
     Active Substance: FERROUS SULFATE
     Dosage: 80,MG,DAILY
     Route: 048
  10. FERROUS SULFATE [Concomitant]
     Active Substance: FERROUS SULFATE
     Dosage: 80,MG,DAILY
     Route: 048
     Dates: end: 20220730
  11. OMEPRAZOLE [Concomitant]
     Active Substance: OMEPRAZOLE
     Dosage: 20,MG,DAILY
     Route: 048
  12. ALLOPURINOL [Concomitant]
     Active Substance: ALLOPURINOL
     Dosage: 300,MG,DAILY
     Route: 048
     Dates: end: 20220806
  13. ALLOPURINOL [Concomitant]
     Active Substance: ALLOPURINOL
     Dosage: 300,MG,DAILY
     Route: 048
  14. ONDANSETRON [Concomitant]
     Active Substance: ONDANSETRON
     Dosage: 8,MG,DAILY
     Route: 042
     Dates: start: 20220727, end: 20220729
  15. ONDANSETRON [Concomitant]
     Active Substance: ONDANSETRON
     Dosage: UNK
     Dates: start: 20220731, end: 20220827
  16. ACETAMINOPHEN [Concomitant]
     Active Substance: ACETAMINOPHEN
     Dosage: 1,G,ONCE
     Route: 048
     Dates: start: 20220801, end: 20220801
  17. ACETAMINOPHEN [Concomitant]
     Active Substance: ACETAMINOPHEN
     Dosage: 1,G,OTHER
     Route: 042
     Dates: start: 20220731, end: 20220827
  18. POLARAMINE [Concomitant]
     Active Substance: DEXCHLORPHENIRAMINE MALEATE
     Dosage: ONCE
     Route: 042
     Dates: start: 20220801, end: 20220801
  19. MOVICOL [Concomitant]
     Active Substance: POLYETHYLENE GLYCOL 3350\POTASSIUM CHLORIDE\SODIUM BICARBONATE\SODIUM CHLORIDE
     Dosage: UNK
     Route: 048
     Dates: start: 20220802, end: 20220803
  20. SODIUM CHLORIDE [Concomitant]
     Active Substance: SODIUM CHLORIDE
     Dosage: 1000,ML,TWICE DAILY
     Route: 042
     Dates: start: 20220727, end: 20220729
  21. SODIUM CHLORIDE [Concomitant]
     Active Substance: SODIUM CHLORIDE
     Dosage: UNK
     Dates: start: 20220805, end: 20220805
  22. SODIUM CHLORIDE [Concomitant]
     Active Substance: SODIUM CHLORIDE
     Dosage: UNK
     Dates: start: 20220806, end: 20220806
  23. SODIUM CHLORIDE [Concomitant]
     Active Substance: SODIUM CHLORIDE
     Dosage: UNK
     Dates: start: 20220807, end: 20220807
  24. SODIUM CHLORIDE [Concomitant]
     Active Substance: SODIUM CHLORIDE
     Dosage: UNK
     Dates: start: 20220811, end: 20220814
  25. SODIUM CHLORIDE [Concomitant]
     Active Substance: SODIUM CHLORIDE
     Dosage: UNK
     Dates: start: 20220815, end: 20220827
  26. METOCLOPRAMIDE [Concomitant]
     Active Substance: METOCLOPRAMIDE
     Dosage: 10,MG,OTHER
     Route: 042
     Dates: start: 20220731, end: 20220827
  27. COTRIMOXAZOLE [Concomitant]
     Active Substance: SULFAMETHOXAZOLE\TRIMETHOPRIM
     Dosage: 160,MG,OTHER
     Route: 048
     Dates: start: 20220731, end: 20220827
  28. ACYCLOVIR [Concomitant]
     Active Substance: ACYCLOVIR
     Dosage: 400,MG,TWICE DAILY
     Route: 048
     Dates: start: 20220731, end: 20220807
  29. ACYCLOVIR [Concomitant]
     Active Substance: ACYCLOVIR
     Dosage: 250,MG,TWICE DAILY
     Route: 042
     Dates: start: 20220808, end: 20220811
  30. ACYCLOVIR [Concomitant]
     Active Substance: ACYCLOVIR
     Dosage: 400,MG,TWICE DAILY
     Route: 048
     Dates: start: 20220812, end: 20220814
  31. ACYCLOVIR [Concomitant]
     Active Substance: ACYCLOVIR
     Dosage: 250,MG,TWICE DAILY
     Route: 042
     Dates: start: 20220815, end: 20220818
  32. ACYCLOVIR [Concomitant]
     Active Substance: ACYCLOVIR
     Dosage: 400,MG,TWICE DAILY
     Route: 048
     Dates: start: 20220819, end: 20220827
  33. POLYETHYLENE GLYCOLS [Concomitant]
     Active Substance: POLYETHYLENE GLYCOLS
     Dosage: 13.8,G,
     Route: 048
     Dates: start: 20220801, end: 20220803
  34. POLYETHYLENE GLYCOLS [Concomitant]
     Active Substance: POLYETHYLENE GLYCOLS
     Dosage: 13.8,G,THREE TIMES DAILY
     Route: 048
     Dates: start: 20220804, end: 20220807
  35. POLYETHYLENE GLYCOLS [Concomitant]
     Active Substance: POLYETHYLENE GLYCOLS
     Dosage: 13.8,G,OTHER
     Route: 048
     Dates: start: 20220807, end: 20220807
  36. LEVETIRACETAM [Concomitant]
     Active Substance: LEVETIRACETAM
     Dosage: 500,MG,TWICE DAILY
     Route: 048
     Dates: start: 20220801, end: 20220807
  37. LEVETIRACETAM [Concomitant]
     Active Substance: LEVETIRACETAM
     Dosage: 500,MG,TWICE DAILY
     Route: 042
     Dates: start: 20220808, end: 20220811
  38. LEVETIRACETAM [Concomitant]
     Active Substance: LEVETIRACETAM
     Dosage: 500,MG,TWICE DAILY
     Route: 048
     Dates: start: 20220812, end: 20220814
  39. LEVETIRACETAM [Concomitant]
     Active Substance: LEVETIRACETAM
     Dosage: 500,MG,TWICE DAILY
     Route: 042
     Dates: start: 20220815, end: 20220818
  40. LEVETIRACETAM [Concomitant]
     Active Substance: LEVETIRACETAM
     Dosage: 500,MG,TWICE DAILY
     Route: 048
     Dates: start: 20220818, end: 20220827
  41. PIPERACILLIN SODIUM\TAZOBACTAM SODIUM [Concomitant]
     Active Substance: PIPERACILLIN SODIUM\TAZOBACTAM SODIUM
     Dosage: 4,G,FOUR TIMES DAILY
     Route: 042
     Dates: start: 20220802, end: 20220811
  42. DAPTOMYCIN [Concomitant]
     Active Substance: DAPTOMYCIN
     Dosage: 500,MG,ONCE
     Route: 042
     Dates: start: 20220803, end: 20220803
  43. METAMIZOL [Concomitant]
     Active Substance: METAMIZOLE SODIUM
     Dosage: 1,G,OTHER
     Route: 042
     Dates: start: 20220803, end: 20220827
  44. POSACONAZOLE [Concomitant]
     Active Substance: POSACONAZOLE
     Dosage: 300,MG,TWICE DAILY
     Route: 048
     Dates: start: 20220804, end: 20220805
  45. POSACONAZOLE [Concomitant]
     Active Substance: POSACONAZOLE
     Dosage: 300,MG,DAILY
     Route: 048
     Dates: start: 20220806, end: 20220824
  46. POSACONAZOLE [Concomitant]
     Active Substance: POSACONAZOLE
     Dosage: 300,MG,TWICE DAILY
     Route: 048
     Dates: start: 20220825, end: 20220825
  47. POSACONAZOLE [Concomitant]
     Active Substance: POSACONAZOLE
     Dosage: 300,MG,DAILY
     Route: 048
     Dates: start: 20220826, end: 20220827
  48. HUMAN RED BLOOD CELL [Concomitant]
     Active Substance: HUMAN RED BLOOD CELL
     Dosage: 1,OTHER,ONCE
     Route: 042
     Dates: start: 20220805, end: 20220805
  49. CALCIUM CARBONATE [Concomitant]
     Active Substance: CALCIUM CARBONATE
     Dosage: 500,MG,ONCE
     Route: 048
     Dates: start: 20220805, end: 20220805
  50. PHYTONADIONE [Concomitant]
     Active Substance: PHYTONADIONE
     Dosage: 10,MG,DAILY
     Route: 042
     Dates: start: 20220805, end: 20220807
  51. ALBUMIN HUMAN [Concomitant]
     Active Substance: ALBUMIN HUMAN
     Dosage: 20% - 10,G,DAILY
     Route: 042
     Dates: start: 20220805, end: 20220806
  52. FUROSEMIDE [Concomitant]
     Active Substance: FUROSEMIDE
     Dosage: 20,MG,ONCE
     Route: 042
     Dates: start: 20220805, end: 20220805
  53. FUROSEMIDE [Concomitant]
     Active Substance: FUROSEMIDE
     Dosage: 20,MG,TWICE DAILY
     Route: 042
     Dates: start: 20220806, end: 20220806
  54. FUROSEMIDE [Concomitant]
     Active Substance: FUROSEMIDE
     Dosage: 20,MG,THREE TIMES DAILY
     Route: 042
     Dates: start: 20220807, end: 20220807
  55. FUROSEMIDE [Concomitant]
     Active Substance: FUROSEMIDE
     Dosage: 20,MG,FOUR TIMES DAILY
     Route: 042
     Dates: start: 20220808, end: 20220808
  56. FUROSEMIDE [Concomitant]
     Active Substance: FUROSEMIDE
     Dosage: 20,MG,THREE TIMES DAILY
     Route: 042
     Dates: start: 20220811, end: 20220812
  57. FUROSEMIDE [Concomitant]
     Active Substance: FUROSEMIDE
     Dosage: 40,MG,ONCE
     Route: 042
     Dates: start: 20220811, end: 20220811
  58. FUROSEMIDE [Concomitant]
     Active Substance: FUROSEMIDE
     Dosage: 20,MG,TWICE DAILY
     Route: 042
     Dates: start: 20220813, end: 20220818
  59. MICAFUNGIN [Concomitant]
     Active Substance: MICAFUNGIN SODIUM
     Dosage: 100,MG,DAILY
     Route: 042
     Dates: start: 20220805, end: 20220824
  60. POTASSIUM CHLORIDE [Concomitant]
     Active Substance: POTASSIUM CHLORIDE
     Dosage: 10,OTHER,OTHER
     Route: 042
     Dates: start: 20220806, end: 20220807
  61. POTASSIUM CHLORIDE [Concomitant]
     Active Substance: POTASSIUM CHLORIDE
     Dosage: 20,OTHER,TWICE DAILY
     Route: 042
     Dates: start: 20220808, end: 20220808
  62. POTASSIUM CHLORIDE [Concomitant]
     Active Substance: POTASSIUM CHLORIDE
     Dosage: 10,OTHER,THREE TIMES DAILY
     Route: 042
     Dates: start: 20220815, end: 20220815
  63. POTASSIUM CHLORIDE [Concomitant]
     Active Substance: POTASSIUM CHLORIDE
     Dosage: 20,OTHER,TWICE DAILY
     Route: 042
     Dates: start: 20220815, end: 20220827
  64. CETIRIZINE [Concomitant]
     Active Substance: CETIRIZINE HYDROCHLORIDE
     Dosage: 10,MG,TWICE DAILY
     Route: 048
     Dates: start: 20220806, end: 20220807
  65. OXYGEN [Concomitant]
     Active Substance: OXYGEN
     Dosage: 2,L/MIN,CONTINUOUS
     Route: 045
     Dates: start: 20220806, end: 20220807
  66. OXYGEN [Concomitant]
     Active Substance: OXYGEN
     Dosage: 1,L/MIN,CONTINUOUS
     Route: 045
     Dates: start: 20220807, end: 20220807
  67. OXYGEN [Concomitant]
     Active Substance: OXYGEN
     Dosage: 3,L/MIN,CONTINUOUS
     Route: 045
     Dates: start: 20220807, end: 20220808
  68. OXYGEN [Concomitant]
     Active Substance: OXYGEN
     Dosage: 2,L/MIN,CONTINUOUS
     Route: 045
     Dates: start: 20220808, end: 20220809
  69. OXYGEN [Concomitant]
     Active Substance: OXYGEN
     Dosage: 3,L/MIN,CONTINUOUS
     Route: 045
     Dates: start: 20220809, end: 20220809
  70. OXYGEN [Concomitant]
     Active Substance: OXYGEN
     Dosage: 2,L/MIN,CONTINUOUS
     Route: 045
     Dates: start: 20220809, end: 20220811
  71. OXYGEN [Concomitant]
     Active Substance: OXYGEN
     Dosage: 3,L/MIN,CONTINUOUS
     Route: 045
     Dates: start: 20220811, end: 20220811
  72. OXYGEN [Concomitant]
     Active Substance: OXYGEN
     Dosage: 2,L/MIN,CONTINUOUS
     Route: 045
     Dates: start: 20220811, end: 20220812
  73. OXYGEN [Concomitant]
     Active Substance: OXYGEN
     Dosage: 1.5,L/MIN,CONTINUOUS
     Route: 045
     Dates: start: 20220812, end: 20220812
  74. OXYGEN [Concomitant]
     Active Substance: OXYGEN
     Dosage: 2,L/MIN,CONTINUOUS
     Route: 045
     Dates: start: 20220813, end: 20220813
  75. OXYGEN [Concomitant]
     Active Substance: OXYGEN
     Dosage: 1,L/MIN,CONTINUOUS
     Route: 045
     Dates: start: 20220813, end: 20220814
  76. OXYGEN [Concomitant]
     Active Substance: OXYGEN
     Dosage: 2,L/MIN,CONTINUOUS
     Route: 045
     Dates: start: 20220814, end: 20220815
  77. OXYGEN [Concomitant]
     Active Substance: OXYGEN
     Dosage: 2,L/MIN,CONTINUOUS
     Route: 045
     Dates: start: 20220815, end: 20220815
  78. OXYGEN [Concomitant]
     Active Substance: OXYGEN
     Dosage: 1,L/MIN,CONTINUOUS
     Route: 045
     Dates: start: 20220815, end: 20220816
  79. PANTOPRAZOLE [Concomitant]
     Active Substance: PANTOPRAZOLE
     Dosage: 40,MG,DAILY
     Route: 042
     Dates: start: 20220807, end: 20220819
  80. DEXTROSE [Concomitant]
     Active Substance: DEXTROSE\DEXTROSE MONOHYDRATE
     Dosage: 10% - 500,ML,DAILY
     Route: 042
     Dates: start: 20220807, end: 20220811
  81. RASBURICASA [Concomitant]
     Dosage: 19,MG,DAILY
     Route: 042
     Dates: start: 20220808, end: 20220812
  82. ALTEPLASE [Concomitant]
     Active Substance: ALTEPLASE
     Dosage: 8 MG ONCE
     Route: 042
     Dates: start: 20220814, end: 20220814
  83. ALTEPLASE [Concomitant]
     Active Substance: ALTEPLASE
     Dosage: 73,MG,ONCE
     Route: 042
     Dates: start: 20220814, end: 20220814
  84. INSULIN NOS [Concomitant]
     Active Substance: INSULIN NOS
     Dosage: ,IU,OTHER
     Route: 058
     Dates: start: 20220815, end: 20220818
  85. URAPIDIL [Concomitant]
     Active Substance: URAPIDIL
     Dosage: 25,MG,OTHER
     Route: 042
     Dates: start: 20220815, end: 20220824

REACTIONS (3)
  - Bradyphrenia [Recovered/Resolved]
  - Disorientation [Recovered/Resolved]
  - Confusional state [Recovered/Resolved]

NARRATIVE: CASE EVENT DATE: 20220807
